FAERS Safety Report 15469923 (Version 2)
Quarter: 2018Q4

REPORT INFORMATION
  Report Type: Report from Study
  Country: GB (occurrence: GB)
  Receive Date: 20181005
  Receipt Date: 20181016
  Transmission Date: 20190205
  Serious: Yes (Hospitalization)
  Sender: FDA-Public Use
  Company Number: GB-PFIZER INC-2018389387

PATIENT
  Sex: Male

DRUGS (10)
  1. DEXIMUNE [Suspect]
     Active Substance: CYCLOSPORINE
     Indication: APLASTIC ANAEMIA
     Dosage: 375 MG, 2X/DAY (TWICE DAILY)
     Dates: start: 20180907
  2. CHLORHEXIDINE [Concomitant]
     Active Substance: CHLORHEXIDINE
     Indication: SUPPLEMENTATION THERAPY
     Dosage: 0.2 %, 4X/DAY
     Route: 048
     Dates: start: 20180907
  3. OMEPRAZOLE. [Concomitant]
     Active Substance: OMEPRAZOLE
     Indication: SUPPLEMENTATION THERAPY
     Dosage: 20 MG, 1X/DAY (ONCE A DAY)
     Route: 048
     Dates: start: 20180907
  4. TRANEXAMIC [Concomitant]
     Indication: SUPPLEMENTATION THERAPY
     Dosage: 1 G, 3X/DAY
     Route: 048
     Dates: start: 201809
  5. DEXIMUNE [Suspect]
     Active Substance: CYCLOSPORINE
     Dosage: 375 MG, UNK
     Dates: start: 20180920
  6. ACICLOVIR [Concomitant]
     Active Substance: ACYCLOVIR
     Indication: SUPPLEMENTATION THERAPY
     Dosage: 400 MG, 2X/DAY (TWICE DAY)
     Route: 048
     Dates: start: 20180907
  7. CIPROFLOXACIN. [Concomitant]
     Active Substance: CIPROFLOXACIN
     Indication: SUPPLEMENTATION THERAPY
     Dosage: 250 MG, 2X/DAY (TWICE A DAY)
     Route: 048
     Dates: start: 20180907
  8. CHLORHEXIDINE [Concomitant]
     Active Substance: CHLORHEXIDINE
     Indication: SUPPLEMENTATION THERAPY
     Dosage: 0.2 %, 4X/DAY
     Route: 061
     Dates: start: 20180907
  9. ATGAM [Suspect]
     Active Substance: EQUINE THYMOCYTE IMMUNE GLOBULIN
     Indication: APLASTIC ANAEMIA
     Dosage: UNK UNK, EVERYDAY FOR 4 DAYS
     Dates: start: 20180907, end: 20180910
  10. POSACONAZOLE [Concomitant]
     Active Substance: POSACONAZOLE
     Indication: SUPPLEMENTATION THERAPY
     Dosage: 100 MG, 1X/DAY (ONCE A DAY)
     Route: 048
     Dates: start: 20180907

REACTIONS (1)
  - Serum sickness [Recovered/Resolved]

NARRATIVE: CASE EVENT DATE: 20180920
